FAERS Safety Report 23608406 (Version 1)
Quarter: 2024Q1

REPORT INFORMATION
  Report Type: Spontaneous
  Country: LT (occurrence: LT)
  Receive Date: 20240307
  Receipt Date: 20240307
  Transmission Date: 20240410
  Serious: Yes (Hospitalization, Disabling)
  Sender: FDA-Public Use
  Company Number: None

PATIENT
  Age: 62 Year
  Sex: Female
  Weight: 46 kg

DRUGS (4)
  1. METHYLPREDNISOLONE [Suspect]
     Active Substance: METHYLPREDNISOLONE
     Indication: Exophthalmos
     Dosage: 1 INJECTION 1 TIME PER WEEK. A TOTAL OF 12 INJECTIONS WERE INJECTED.
     Route: 065
     Dates: start: 201812, end: 201901
  2. TRIMETAZIDINE DIHYDROCHLORIDE [Concomitant]
     Active Substance: TRIMETAZIDINE DIHYDROCHLORIDE
     Indication: Angina pectoris
     Dosage: 1 TAB PER DAY
     Route: 048
     Dates: start: 201810
  3. INDAPAMIDE\PERINDOPRIL ARGININE [Concomitant]
     Active Substance: INDAPAMIDE\PERINDOPRIL ARGININE
     Indication: Hypertension
     Dosage: 1 TAB. PER DAY
     Route: 048
     Dates: start: 201810
  4. LEVOTHYROXINE SODIUM [Concomitant]
     Active Substance: LEVOTHYROXINE SODIUM
     Indication: Hypothyroidism
     Dosage: DURING EYE PROBLEMS IN 2018-2019, THE PATIENT TOOK A DOSE OF 100 MCG, CURRENTLY TAKING 175 MCG ON...
     Route: 048
     Dates: start: 201807

REACTIONS (7)
  - Surgery [Not Recovered/Not Resolved]
  - Conjunctival defect [Not Recovered/Not Resolved]
  - Eye disorder [Not Recovered/Not Resolved]
  - Glaucoma [Not Recovered/Not Resolved]
  - Visual impairment [Not Recovered/Not Resolved]
  - Eye colour change [Not Recovered/Not Resolved]
  - Strabismus [Not Recovered/Not Resolved]

NARRATIVE: CASE EVENT DATE: 20190101
